FAERS Safety Report 19991284 (Version 1)
Quarter: 2021Q4

REPORT INFORMATION
  Report Type: Spontaneous
  Country: US (occurrence: US)
  Receive Date: 20211025
  Receipt Date: 20211025
  Transmission Date: 20220303
  Serious: No
  Sender: FDA-Public Use
  Company Number: None

PATIENT
  Age: 58 Year
  Sex: Female
  Weight: 75.6 kg

DRUGS (1)
  1. RECLAST [Suspect]
     Active Substance: ZOLEDRONIC ACID
     Indication: Osteoporosis
     Dosage: ?          OTHER FREQUENCY:ONCE A YEAR;
     Route: 042
     Dates: start: 20211019, end: 20211019

REACTIONS (7)
  - Myalgia [None]
  - Chills [None]
  - Fatigue [None]
  - Lethargy [None]
  - Pyrexia [None]
  - Pain in extremity [None]
  - Pain [None]

NARRATIVE: CASE EVENT DATE: 20211020
